FAERS Safety Report 5317418-5 (Version None)
Quarter: 2007Q2

REPORT INFORMATION
  Report Type: 
  Country: None (occurrence: None)
  Receive Date: 20070503
  Receipt Date: 20070503
  Transmission Date: 20071010
  Serious: No
  Sender: FDA-Public Use
  Company Number: None

PATIENT
  Age: 72 Year
  Sex: Female
  Weight: 69.8539 kg

DRUGS (1)
  1. FULVESTRANT  250 MG  ASTRAZENECA PHARMACEUTICALS [Suspect]
     Indication: BREAST CANCER METASTATIC
     Dosage: 500MG  Q 28 DAYS  IM
     Route: 030
     Dates: start: 20070131, end: 20070425

REACTIONS (1)
  - MEDICATION ERROR [None]
